FAERS Safety Report 9304939 (Version 4)
Quarter: 2013Q3

REPORT INFORMATION
  Report Type: Spontaneous
  Country: DE (occurrence: None)
  Receive Date: 20130219
  Receipt Date: 20130701
  Transmission Date: 20140515
  Serious: Yes (Death, Life-Threatening, Hospitalization)
  Sender: FDA-Public Use
  Company Number: DE-JNJFOC-20130112129

PATIENT
  Age: 78 Year
  Sex: Male

DRUGS (9)
  1. DACOGEN [Suspect]
     Indication: ACUTE MYELOID LEUKAEMIA
     Dosage: FIRST CYCLE INTRAVENOUS
     Dates: start: 201208
  2. VALPROIC ACID [Suspect]
     Indication: ACUTE MYELOID LEUKAEMIA
     Route: 048
     Dates: start: 20120808, end: 20121128
  3. RETINOIC ACID [Suspect]
     Indication: ACUTE MYELOID LEUKAEMIA
     Dates: start: 20120808, end: 20121128
  4. PANTOPRAZOLE [Concomitant]
  5. LACTULOSE [Concomitant]
  6. HALOPERIDOL [Concomitant]
  7. TAVOR [Concomitant]
  8. VOMEX A [Concomitant]
  9. SEVREDOL [Concomitant]

REACTIONS (18)
  - Dyspnoea [None]
  - Skin ulcer [None]
  - Cyanosis [None]
  - Joint stiffness [None]
  - Pain [None]
  - Pleural effusion [None]
  - Respiratory failure [None]
  - Convulsion [None]
  - Hypoxia [None]
  - Hallucination [None]
  - General physical health deterioration [None]
  - Refusal of treatment by patient [None]
  - Refusal of treatment by relative [None]
  - Bundle branch block right [None]
  - Hypervolaemia [None]
  - Drug ineffective [None]
  - Acute myeloid leukaemia [None]
  - Blood urine present [None]
